FAERS Safety Report 11768641 (Version 4)
Quarter: 2015Q4

REPORT INFORMATION
  Report Type: Spontaneous
  Country: IT (occurrence: IT)
  Receive Date: 20151123
  Receipt Date: 20151216
  Transmission Date: 20160304
  Serious: Yes (Hospitalization)
  Sender: FDA-Public Use
  Company Number: IT-PFIZER INC-2015399627

PATIENT
  Age: 80 Year
  Sex: Male

DRUGS (1)
  1. AMIODARONE HCL [Suspect]
     Active Substance: AMIODARONE HYDROCHLORIDE
     Indication: ARRHYTHMIA
     Dosage: UNK
     Route: 065

REACTIONS (5)
  - Intracardiac thrombus [Recovered/Resolved]
  - Hyperthyroidism [Recovering/Resolving]
  - Cardiac fibrillation [Not Recovered/Not Resolved]
  - Cardiac failure [Recovering/Resolving]
  - Respiratory alkalosis [Recovering/Resolving]
